FAERS Safety Report 6060797-4 (Version None)
Quarter: 2009Q1

REPORT INFORMATION
  Report Type: 
  Country: None (occurrence: None)
  Receive Date: 20090202
  Receipt Date: 20090126
  Transmission Date: 20090719
  Serious: Yes (Death, Hospitalization, Other)
  Sender: FDA-Public Use
  Company Number: PHHY2008NO32219

PATIENT
  Sex: Male

DRUGS (22)
  1. SANDIMMUNE [Suspect]
     Indication: RENAL TRANSPLANT
     Dosage: 75 MG, BID
     Route: 048
     Dates: end: 20070928
  2. SANDIMMUNE [Interacting]
     Dosage: UNK
     Route: 042
     Dates: start: 20070927, end: 20070928
  3. SIMVASTATIN (NGX) [Interacting]
     Indication: HYPERCHOLESTEROLAEMIA
     Dosage: 80 MG IN THE MORNING
     Route: 048
     Dates: start: 20070917, end: 20071006
  4. LESCOL [Concomitant]
     Indication: HYPERCHOLESTEROLAEMIA
     Dosage: UNK
  5. SOLU-CORTEF [Concomitant]
     Dosage: 100 MG
     Route: 042
     Dates: end: 20070929
  6. DIURAL [Concomitant]
     Dosage: 120 MG MORNING
     Dates: start: 20071001
  7. DIURAL [Concomitant]
     Dosage: 125 MG, QD
     Dates: start: 20071006
  8. ZINACEF [Concomitant]
     Dosage: UNK
     Dates: start: 20070901, end: 20070901
  9. FRAGMIN [Concomitant]
     Dosage: 5000 IU/DAY
     Route: 058
     Dates: start: 20071007, end: 20071009
  10. FLAGYL [Concomitant]
     Indication: CLOSTRIDIUM DIFFICILE COLITIS
     Dosage: 400 MG (1+1+0+1)
     Dates: start: 20070901, end: 20071001
  11. ALBYL-E [Concomitant]
     Dosage: 75 MG IN THE MORNING
     Route: 048
  12. SODIUM BICARBONATE [Concomitant]
     Indication: METABOLIC ACIDOSIS
     Dosage: 1 G, TID
     Dates: start: 20071001
  13. SELO-ZOK [Concomitant]
     Dosage: 50 MG IN THE MORNING
  14. ARANESP [Concomitant]
     Dosage: 30 MG
     Route: 051
     Dates: start: 20071001
  15. ARANESP [Concomitant]
     Dosage: 30 MG
     Route: 051
     Dates: start: 20071005
  16. ARANESP [Concomitant]
     Dosage: 30 MG
     Route: 051
     Dates: start: 20071008
  17. PREDNISOLONE [Concomitant]
     Dosage: 5 MG MORNING
  18. ZYLORIC [Concomitant]
     Dosage: 100 MG MORNING
     Route: 048
  19. TRIATEC [Concomitant]
     Dosage: 2.5 MG
     Route: 048
     Dates: end: 20070927
  20. ETALPHA [Concomitant]
     Dosage: 0.25 MG MORNING
     Dates: start: 20071008, end: 20071009
  21. NYCOPLUS FERRO [Concomitant]
     Dosage: 100 MG MORNING
     Route: 048
  22. TITRALAC [Concomitant]
     Dosage: 1750 MG
     Route: 048
     Dates: start: 20071007

REACTIONS (14)
  - BLOOD CREATINE PHOSPHOKINASE INCREASED [None]
  - CARDIAC ARREST [None]
  - CLOSTRIDIUM DIFFICILE COLITIS [None]
  - DEHYDRATION [None]
  - DIARRHOEA [None]
  - DYSPHAGIA [None]
  - FUNGUS SEROLOGY TEST POSITIVE [None]
  - GASTRITIS HAEMORRHAGIC [None]
  - HYPERKALAEMIA [None]
  - MYOPATHY [None]
  - MYOSITIS [None]
  - PSEUDOMEMBRANOUS COLITIS [None]
  - RENAL FAILURE ACUTE [None]
  - RHABDOMYOLYSIS [None]
